FAERS Safety Report 9153793 (Version 1)
Quarter: 2013Q1

REPORT INFORMATION
  Report Type: Spontaneous
  Country: CH (occurrence: CH)
  Receive Date: 20130311
  Receipt Date: 20130311
  Transmission Date: 20140127
  Serious: Yes (Other)
  Sender: FDA-Public Use
  Company Number: CH-JNJFOC-20130217107

PATIENT
  Sex: 0

DRUGS (1)
  1. INFLIXIMAB, RECOMBINANT [Suspect]
     Indication: COLITIS ULCERATIVE
     Dosage: FREQUENCY AT 0, 2, 6 AND THEN EVERY 8 WEEKS.
     Route: 042

REACTIONS (10)
  - Hypersensitivity [Unknown]
  - Herpes simplex [Unknown]
  - Lupus-like syndrome [Unknown]
  - Subcutaneous abscess [Unknown]
  - Dermatitis atopic [Unknown]
  - Respiratory tract infection [Unknown]
  - Erythema [Unknown]
  - Alopecia [Unknown]
  - Diarrhoea [Unknown]
  - Therapeutic response decreased [Unknown]
